FAERS Safety Report 12704936 (Version 2)
Quarter: 2016Q3

REPORT INFORMATION
  Report Type: Spontaneous
  Country: US (occurrence: US)
  Receive Date: 20160831
  Receipt Date: 20160916
  Transmission Date: 20161109
  Serious: Yes (Other)
  Sender: FDA-Public Use
  Company Number: US-LUNDBECK-DKLU2018411

PATIENT
  Age: 52 Year
  Sex: Female

DRUGS (1)
  1. NORTHERA [Suspect]
     Active Substance: DROXIDOPA
     Indication: AUTONOMIC NEUROPATHY
     Dosage: TITRATIOON SCHEDULE C
     Route: 065
     Dates: start: 20160809

REACTIONS (12)
  - Asthenia [Unknown]
  - Loss of consciousness [Unknown]
  - Pain in extremity [Unknown]
  - Fatigue [Unknown]
  - Increased tendency to bruise [Unknown]
  - Joint swelling [Unknown]
  - Swelling [Unknown]
  - Vertigo [Unknown]
  - Abasia [Unknown]
  - Blood pressure decreased [Unknown]
  - Hypoaesthesia [Unknown]
  - Muscle spasms [Unknown]

NARRATIVE: CASE EVENT DATE: 201608
